FAERS Safety Report 23625908 (Version 2)
Quarter: 2024Q3

REPORT INFORMATION
  Report Type: Spontaneous
  Country: DE (occurrence: DE)
  Receive Date: 20240313
  Receipt Date: 20240710
  Transmission Date: 20241016
  Serious: Yes (Death)
  Sender: CELLTRION
  Company Number: DE-CELLTRION INC.-2024DE005647

PATIENT

DRUGS (5)
  1. BEVACIZUMAB [Suspect]
     Active Substance: BEVACIZUMAB
     Indication: Neoplasm malignant
     Dosage: ON 13/MAR/2023, RECEIVED MOST RECENT DOSE ADMINISTERED PRIOR TO AE
     Route: 042
     Dates: start: 20230130, end: 20230828
  2. IRINOTECAN HYDROCHLORIDE [Suspect]
     Active Substance: IRINOTECAN HYDROCHLORIDE
     Indication: Neoplasm malignant
     Dosage: ON 13/MAR/2023, RECEIVED MOST RECENT DOSE ADMINISTERED PRIOR TO AE
     Route: 042
     Dates: start: 20230130, end: 20230313
  3. FLUOROURACIL [Suspect]
     Active Substance: FLUOROURACIL
     Indication: Neoplasm malignant
     Dosage: ON 27/FEB/2023, RECEIVED MOST RECENT DOSE ADMINISTERED PRIOR TO AE (PHARMACEUTICAL DOSAGE FORM (FREE
     Route: 042
     Dates: start: 20230130, end: 20230828
  4. FLUOROURACIL [Suspect]
     Active Substance: FLUOROURACIL
     Dosage: ON 27/FEB/2023, RECEIVED MOST RECENT DOSE ADMINISTERED PRIOR TO AE
     Route: 042
     Dates: start: 20230130, end: 20230828
  5. LEUCOVORIN [Suspect]
     Active Substance: LEUCOVORIN\LEUCOVORIN CALCIUM
     Indication: Neoplasm malignant
     Dosage: ON 27/FEB/2023, RECEIVED MOST RECENT DOSE ADMINISTERED PRIOR TO AE
     Route: 042
     Dates: start: 20230130, end: 20230828

REACTIONS (2)
  - Death [Fatal]
  - Infusion related reaction [Recovered/Resolved]

NARRATIVE: CASE EVENT DATE: 20230313
